FAERS Safety Report 5010220-3 (Version None)
Quarter: 2006Q2

REPORT INFORMATION
  Report Type: 
  Country: None (occurrence: None)
  Receive Date: 20060404
  Receipt Date: 20051215
  Transmission Date: 20061013
  Serious: No
  Sender: FDA-Public Use
  Company Number: US200512003417

PATIENT
  Age: 58 Year
  Sex: Male

DRUGS (5)
  1. CYMBALTA [Suspect]
     Indication: DEPRESSION
     Dosage: 30 MG
     Dates: start: 20050923, end: 20051201
  2. TRAZODONE HCL [Concomitant]
  3. XANAX /USA/ (ALPRAZOLAM) [Concomitant]
  4. COREG [Concomitant]
  5. LISINOPRIL [Concomitant]

REACTIONS (1)
  - STOMACH DISCOMFORT [None]
